FAERS Safety Report 9214826 (Version 12)
Quarter: 2016Q1

REPORT INFORMATION
  Report Type: Spontaneous
  Country: CA (occurrence: CA)
  Receive Date: 20130405
  Receipt Date: 20160318
  Transmission Date: 20160526
  Serious: Yes (Other)
  Sender: FDA-Public Use
  Company Number: CA-GLAXOSMITHKLINE-A0977388A

PATIENT
  Age: 32 Year
  Sex: Female
  Weight: 61 kg

DRUGS (16)
  1. PREDNISONE. [Concomitant]
     Active Substance: PREDNISONE
     Indication: SYSTEMIC LUPUS ERYTHEMATOSUS
     Dosage: 20 TO 30 MG PO PRN
     Route: 048
  2. OXYCONTIN [Concomitant]
     Active Substance: OXYCODONE HYDROCHLORIDE
     Indication: PRODUCT USED FOR UNKNOWN INDICATION
     Dosage: UNK UNK, U
     Route: 065
  3. CELLCEPT [Concomitant]
     Active Substance: MYCOPHENOLATE MOFETIL\MYCOPHENOLATE MOFETIL HYDROCHLORIDE
     Indication: SYSTEMIC LUPUS ERYTHEMATOSUS
     Dosage: 1 DF, 1D
     Route: 065
  4. BENLYSTA [Suspect]
     Active Substance: BELIMUMAB
     Dosage: UNK
     Route: 042
     Dates: start: 20120427
  5. BENLYSTA [Suspect]
     Active Substance: BELIMUMAB
     Dosage: 590 MG, UNK
     Route: 042
     Dates: start: 20120427
  6. LITHIUM. [Concomitant]
     Active Substance: LITHIUM
     Indication: PRODUCT USED FOR UNKNOWN INDICATION
     Dosage: UNK UNK, U
     Route: 065
  7. FLUOXETINE [Concomitant]
     Active Substance: FLUOXETINE HYDROCHLORIDE
     Indication: PRODUCT USED FOR UNKNOWN INDICATION
     Dosage: UNK UNK, U
     Route: 065
  8. BENLYSTA [Suspect]
     Active Substance: BELIMUMAB
     Indication: SYSTEMIC LUPUS ERYTHEMATOSUS
     Dosage: 700 MG 0, 2, 4 WEEK AND THEN EVERY 4 WEEKS
     Route: 042
     Dates: start: 20120427
  9. PLAQUENIL [Concomitant]
     Active Substance: HYDROXYCHLOROQUINE SULFATE
     Indication: SYSTEMIC LUPUS ERYTHEMATOSUS
     Dosage: 1 DF, 1D
     Route: 048
  10. BENADRYL [Suspect]
     Active Substance: DIPHENHYDRAMINE HYDROCHLORIDE
     Indication: PRODUCT USED FOR UNKNOWN INDICATION
     Dosage: UNK UNK, U
     Route: 042
  11. HYDROXYCHLOROQUINE [Concomitant]
     Active Substance: HYDROXYCHLOROQUINE
     Indication: SYSTEMIC LUPUS ERYTHEMATOSUS
     Dosage: UNK UNK, U
     Route: 065
  12. PREDNISONE. [Concomitant]
     Active Substance: PREDNISONE
     Dosage: 40 MG, UNK
  13. ABILIFY [Concomitant]
     Active Substance: ARIPIPRAZOLE
     Indication: PRODUCT USED FOR UNKNOWN INDICATION
     Dosage: UNK UNK, U
     Route: 065
  14. TYLENOL [Concomitant]
     Active Substance: ACETAMINOPHEN
     Indication: PRODUCT USED FOR UNKNOWN INDICATION
     Dosage: UNK UNK, U
     Route: 065
  15. BENLYSTA [Suspect]
     Active Substance: BELIMUMAB
     Dosage: UNK
     Route: 042
     Dates: start: 20160208
  16. ZOPICLONE [Concomitant]
     Active Substance: ZOPICLONE
     Indication: PRODUCT USED FOR UNKNOWN INDICATION
     Dosage: UNK UNK, U
     Route: 065

REACTIONS (35)
  - Vomiting [Recovered/Resolved]
  - Pruritus [Recovered/Resolved]
  - Depressed mood [Unknown]
  - Skin tightness [Recovered/Resolved]
  - Tremor [Unknown]
  - Asthenia [Unknown]
  - Rash [Unknown]
  - Flushing [Recovered/Resolved]
  - Urticaria [Recovered/Resolved]
  - Swelling face [Unknown]
  - Dizziness [Recovered/Resolved]
  - Eye swelling [Unknown]
  - Eye infection [Recovered/Resolved]
  - Body temperature increased [Recovered/Resolved]
  - Retching [Recovered/Resolved]
  - Abdominal discomfort [Unknown]
  - Pleurisy [Unknown]
  - Initial insomnia [Unknown]
  - Pneumonia [Unknown]
  - Lethargy [Unknown]
  - Feeling abnormal [Unknown]
  - Infusion site irritation [Recovered/Resolved]
  - Chest pain [Unknown]
  - Lower respiratory tract infection [Unknown]
  - Infusion site erythema [Recovered/Resolved]
  - Nausea [Recovered/Resolved]
  - Feeling hot [Recovered/Resolved]
  - Scratch [Recovered/Resolved]
  - Fatigue [Unknown]
  - Pruritus generalised [Unknown]
  - Mucosal ulceration [Unknown]
  - Lip swelling [Unknown]
  - Systemic lupus erythematosus [Not Recovered/Not Resolved]
  - Chest discomfort [Unknown]
  - Arthralgia [Unknown]

NARRATIVE: CASE EVENT DATE: 20120427
